FAERS Safety Report 9089379 (Version 2)
Quarter: 2013Q1

REPORT INFORMATION
  Report Type: Spontaneous
  Country: AU (occurrence: AU)
  Receive Date: 20130131
  Receipt Date: 20130219
  Transmission Date: 20140127
  Serious: Yes (Death, Congenital Anomaly)
  Sender: FDA-Public Use
  Company Number: AU-PFIZER INC-2013038606

PATIENT
  Sex: 0

DRUGS (5)
  1. MS CONTIN [Suspect]
     Dosage: UNK
     Route: 064
     Dates: end: 20120820
  2. GABAPENTIN [Suspect]
     Dosage: UNK
     Route: 064
     Dates: end: 20120820
  3. NORSPAN [Suspect]
     Dosage: UNK
     Route: 064
     Dates: end: 20120820
  4. CLONIDINE [Suspect]
     Dosage: UNK
     Route: 064
     Dates: end: 20120820
  5. PANADEINE /00116401/ [Suspect]
     Dosage: UNK
     Route: 064

REACTIONS (4)
  - Maternal exposure timing unspecified [Fatal]
  - Aneurysm arteriovenous [Fatal]
  - Maternal drugs affecting foetus [None]
  - Caesarean section [None]
